FAERS Safety Report 9377001 (Version 1)
Quarter: 2013Q3

REPORT INFORMATION
  Report Type: Spontaneous
  Country: DE (occurrence: DE)
  Receive Date: 20130701
  Receipt Date: 20130701
  Transmission Date: 20140515
  Serious: Yes (Hospitalization, Other)
  Sender: FDA-Public Use
  Company Number: DE-PFIZER INC-2013178852

PATIENT
  Age: 35 Year
  Sex: Male

DRUGS (2)
  1. PREGABALIN [Suspect]
     Dosage: 50 MG DAILY
  2. METHADONE [Concomitant]

REACTIONS (9)
  - Drug dependence [Unknown]
  - Drug abuse [Unknown]
  - Withdrawal syndrome [Unknown]
  - Agitation [Unknown]
  - Sleep disorder [Unknown]
  - Musculoskeletal discomfort [Unknown]
  - Arthropathy [Unknown]
  - Fear [Unknown]
  - Restlessness [Unknown]
